FAERS Safety Report 7629549-5 (Version None)
Quarter: 2011Q3

REPORT INFORMATION
  Report Type: 
  Country: None (occurrence: None)
  Receive Date: 20110722
  Receipt Date: 20110323
  Transmission Date: 20111222
  Serious: No
  Sender: FDA-Public Use
  Company Number: US-BAYER-2011-025809

PATIENT
  Age: 31 Year
  Sex: Male

DRUGS (1)
  1. BETASERON [Suspect]
     Route: 058

REACTIONS (1)
  - FASCIAL HERNIA [None]
